FAERS Safety Report 9818229 (Version 1)
Quarter: 2013Q4

REPORT INFORMATION
  Report Type: Spontaneous
  Country: US (occurrence: None)
  Receive Date: 20131224
  Receipt Date: 20131224
  Transmission Date: 20140711
  Serious: Yes (Other)
  Sender: FDA-Public Use
  Company Number: PHEH2013US022798

PATIENT
  Age: 42 Year
  Sex: Female

DRUGS (1)
  1. GILENYA (FINGOLIMOD) CAPSULE [Suspect]
     Dosage: ORAL
     Route: 048
     Dates: start: 201201, end: 20120617

REACTIONS (1)
  - Multiple sclerosis relapse [None]
